FAERS Safety Report 5447466-6 (Version None)
Quarter: 2007Q3

REPORT INFORMATION
  Report Type: 
  Country: None (occurrence: None)
  Receive Date: 20070905
  Receipt Date: 20070905
  Transmission Date: 20080115
  Serious: Yes (Other)
  Sender: FDA-Public Use
  Company Number: None

PATIENT
  Sex: Female
  Weight: 54.4316 kg

DRUGS (11)
  1. PROMETHAZINE [Suspect]
     Indication: MIGRAINE
     Dosage: 25 MG EVERY 6 HOURS PO
     Route: 048
     Dates: start: 20070726, end: 20070801
  2. IRBESARTAN [Concomitant]
  3. LEVOTHYROXINE SODIUM [Concomitant]
  4. FOLIC ACID [Concomitant]
  5. CYMBALTA [Concomitant]
  6. CLONAZEPAM [Concomitant]
  7. OXYCONTIN [Concomitant]
  8. COLACE [Concomitant]
  9. SIMVASTATIN [Concomitant]
  10. BOTULINUM THERAPY [Concomitant]
  11. OXYCODONE HCL [Concomitant]

REACTIONS (1)
  - TARDIVE DYSKINESIA [None]
